FAERS Safety Report 6035939-7 (Version None)
Quarter: 2009Q1

REPORT INFORMATION
  Report Type: 
  Country: None (occurrence: None)
  Receive Date: 20090113
  Receipt Date: 20090112
  Transmission Date: 20090719
  Serious: Yes (Hospitalization)
  Sender: FDA-Public Use
  Company Number: B0553800A

PATIENT
  Age: 6 Year
  Sex: Female

DRUGS (2)
  1. RANIDIL [Suspect]
     Indication: DRUG USE FOR UNKNOWN INDICATION
     Route: 065
  2. TACHIPIRINA [Concomitant]

REACTIONS (1)
  - LARYNGEAL OEDEMA [None]
